FAERS Safety Report 5577978-6 (Version None)
Quarter: 2007Q4

REPORT INFORMATION
  Report Type: 
  Country: None (occurrence: None)
  Receive Date: 20071231
  Receipt Date: 20071219
  Transmission Date: 20080405
  Serious: Yes (Hospitalization)
  Sender: FDA-Public Use
  Company Number: US-ROCHE-537654

PATIENT
  Age: 43 Year
  Sex: Female

DRUGS (2)
  1. ROCEPHIN [Suspect]
     Indication: DRUG USE FOR UNKNOWN INDICATION
     Route: 065
     Dates: start: 20070925
  2. COPAXONE [Suspect]
     Indication: MULTIPLE SCLEROSIS
     Route: 058
     Dates: start: 20070802

REACTIONS (5)
  - ABDOMINAL PAIN [None]
  - CATHETER SITE RELATED REACTION [None]
  - HYPERSENSITIVITY [None]
  - MUSCLE INJURY [None]
  - RESPIRATORY ARREST [None]
